FAERS Safety Report 10240697 (Version 2)
Quarter: 2014Q3

REPORT INFORMATION
  Report Type: Spontaneous
  Country: BE (occurrence: BE)
  Receive Date: 20140613
  Receipt Date: 20140702
  Transmission Date: 20150326
  Serious: Yes (Hospitalization)
  Sender: FDA-Public Use
  Company Number: DE-ASTRAZENECA-2014SE39048

PATIENT
  Age: 51 Year
  Sex: Female

DRUGS (4)
  1. AMLODIPINE [Concomitant]
     Active Substance: AMLODIPINE BESYLATE
     Indication: HYPERTENSION
  2. PANTOPRAZOLE [Suspect]
     Active Substance: PANTOPRAZOLE SODIUM
     Indication: PEPTIC ULCER
     Route: 048
  3. PANTOPRAZOLE [Suspect]
     Active Substance: PANTOPRAZOLE SODIUM
     Indication: UPPER GASTROINTESTINAL HAEMORRHAGE
     Route: 048
  4. OMEPRAZOLE. [Suspect]
     Active Substance: OMEPRAZOLE
     Indication: PEPTIC ULCER
     Route: 048

REACTIONS (5)
  - Epilepsy [Recovered/Resolved]
  - Electrocardiogram QT prolonged [Unknown]
  - Hypomagnesaemia [Not Recovered/Not Resolved]
  - Hypokalaemia [Recovered/Resolved]
  - Hypocalcaemia [Not Recovered/Not Resolved]
